FAERS Safety Report 10024484 (Version 1)
Quarter: 2014Q1

REPORT INFORMATION
  Report Type: Spontaneous
  Country: US (occurrence: None)
  Receive Date: 20140204
  Receipt Date: 20140204
  Transmission Date: 20141002
  Serious: Yes (Life-Threatening)
  Sender: FDA-Public Use
  Company Number: 2013-012763

PATIENT
  Age: 24 Year
  Sex: Female

DRUGS (1)
  1. UP+UP OIL FREE ACNE WASH [Suspect]

REACTIONS (3)
  - Eyelid oedema [None]
  - Swelling face [None]
  - Anaphylactic shock [None]
